FAERS Safety Report 23158911 (Version 1)
Quarter: 2023Q4

REPORT INFORMATION
  Report Type: Spontaneous
  Country: US (occurrence: None)
  Receive Date: 20231107
  Receipt Date: 20231107
  Transmission Date: 20240110
  Serious: Yes (Other)
  Sender: FDA-Public Use
  Company Number: None

PATIENT
  Age: 35 Year
  Sex: Female
  Weight: 90 kg

DRUGS (3)
  1. COSMETICS [Suspect]
     Active Substance: COSMETICS
     Indication: Skin wrinkling
     Dosage: FREQUENCY : AT BEDTIME;?
     Route: 061
     Dates: start: 20231103, end: 20231104
  2. COSMETICS [Suspect]
     Active Substance: COSMETICS
     Indication: Dry skin prophylaxis
  3. NEUTROGENA RAPID WRINKLE REPAIR RETINOL MOISTURIZER SUNSCREEN BROAD SP [Suspect]
     Active Substance: AVOBENZONE\HOMOSALATE\OCTISALATE\OCTOCRYLENE
     Dosage: FREQUENCY : DAILY;?
     Route: 061
     Dates: start: 20231103, end: 20231104

REACTIONS (4)
  - Application site burn [None]
  - Thermal burn [None]
  - Skin exfoliation [None]
  - Skin exfoliation [None]

NARRATIVE: CASE EVENT DATE: 20231103
